FAERS Safety Report 23684462 (Version 2)
Quarter: 2024Q2

REPORT INFORMATION
  Report Type: Spontaneous
  Country: RO (occurrence: RO)
  Receive Date: 20240328
  Receipt Date: 20240527
  Transmission Date: 20240716
  Serious: Yes (Hospitalization, Other)
  Sender: FDA-Public Use
  Company Number: RO-002147023-NVSC2024RO061931

PATIENT
  Age: 6 Year
  Sex: Male
  Weight: 14 kg

DRUGS (5)
  1. KYMRIAH [Suspect]
     Active Substance: TISAGENLECLEUCEL
     Indication: Acute lymphocytic leukaemia recurrent
     Dosage: UNK
     Route: 065
  2. LEVETIRACETAM [Concomitant]
     Active Substance: LEVETIRACETAM
     Indication: Product used for unknown indication
     Dosage: UNK
     Route: 065
  3. DEXAMETHASONE [Concomitant]
     Active Substance: DEXAMETHASONE
     Indication: Product used for unknown indication
     Dosage: UNK
     Route: 065
  4. BORTEZOMIB [Concomitant]
     Active Substance: BORTEZOMIB
     Indication: Product used for unknown indication
     Dosage: UNK
     Route: 065
  5. VINCRISTINE [Concomitant]
     Active Substance: VINCRISTINE
     Indication: Product used for unknown indication
     Dosage: UNK
     Route: 065

REACTIONS (11)
  - Cytokine release syndrome [Unknown]
  - Skin lesion [Unknown]
  - Haemophagocytic lymphohistiocytosis [Unknown]
  - Hypotension [Unknown]
  - Face oedema [Unknown]
  - Hepatomegaly [Unknown]
  - Hepatic enzyme increased [Unknown]
  - Hypofibrinogenaemia [Unknown]
  - Pyrexia [Unknown]
  - Pain in jaw [Unknown]
  - Sinusitis [Unknown]
